FAERS Safety Report 6483739-6 (Version None)
Quarter: 2009Q4

REPORT INFORMATION
  Report Type: 
  Country: None (occurrence: None)
  Receive Date: 20091209
  Receipt Date: 20090513
  Transmission Date: 20100525
  Serious: No
  Sender: FDA-Public Use
  Company Number: US-AMGEN-KDL345570

PATIENT
  Sex: Female

DRUGS (12)
  1. ENBREL [Suspect]
     Indication: RHEUMATOID ARTHRITIS
     Route: 058
     Dates: start: 20080104
  2. PLAQUENIL [Concomitant]
     Route: 048
     Dates: start: 20080104
  3. AVINZA [Concomitant]
     Dates: start: 20080716
  4. FLUOXETINE [Concomitant]
     Dates: start: 20080104
  5. CLONAZEPAM [Concomitant]
     Dates: start: 20090323
  6. LORTAB [Concomitant]
  7. AMBIEN [Concomitant]
     Dates: start: 20080104
  8. CELEBREX [Concomitant]
  9. FOLIC ACID [Concomitant]
     Dates: start: 20080104
  10. GABAPENTIN [Concomitant]
     Dates: start: 20080104
  11. NEXIUM [Concomitant]
     Dates: start: 20080428
  12. SKELAXIN [Concomitant]
     Dates: start: 20080104

REACTIONS (2)
  - INJECTION SITE ERYTHEMA [None]
  - INJECTION SITE URTICARIA [None]
